FAERS Safety Report 17822966 (Version 1)
Quarter: 2020Q2

REPORT INFORMATION
  Report Type: Spontaneous
  Country: US (occurrence: US)
  Receive Date: 20200522
  Receipt Date: 20200522
  Transmission Date: 20200714
  Serious: No
  Sender: FDA-Public Use
  Company Number: None

PATIENT
  Age: 67 Year
  Sex: Male
  Weight: 98.64 kg

DRUGS (15)
  1. IRINOTECAN [Concomitant]
     Active Substance: IRINOTECAN
  2. FERROUS SULFATE 325MG [Concomitant]
     Active Substance: FERROUS SULFATE
  3. FOSAPRETITANT DIMEGLUMINE 150MG [Concomitant]
  4. PALONOSETRON. [Concomitant]
     Active Substance: PALONOSETRON HYDROCHLORIDE
  5. BEVACIZUMAB 1MG [Concomitant]
  6. FUROSEMIDE 40MG [Concomitant]
     Active Substance: FUROSEMIDE
  7. HYDROCHLOROTHIAZIDE 25MG [Concomitant]
     Active Substance: HYDROCHLOROTHIAZIDE
  8. LISINOPRIL. [Concomitant]
     Active Substance: LISINOPRIL
  9. PROMETHAZINE 25MG [Concomitant]
  10. VITAMIN C [Concomitant]
     Active Substance: ASCORBIC ACID
  11. ATROPINE 1% OPTHALMIC [Concomitant]
  12. GABAPENTIN 300MG [Concomitant]
     Active Substance: GABAPENTIN
  13. ONDANSETRON 8MG [Concomitant]
     Active Substance: ONDANSETRON
  14. CAPECITABINE. [Suspect]
     Active Substance: CAPECITABINE
     Indication: COLON CANCER
     Route: 048
     Dates: start: 20200303
  15. CARVEDILOL 12.5MG [Concomitant]
     Active Substance: CARVEDILOL

REACTIONS (1)
  - Skin discolouration [None]

NARRATIVE: CASE EVENT DATE: 20200522
